FAERS Safety Report 5578871-5 (Version None)
Quarter: 2008Q1

REPORT INFORMATION
  Report Type: 
  Country: None (occurrence: None)
  Receive Date: 20080102
  Receipt Date: 20071217
  Transmission Date: 20080703
  Serious: Yes (Hospitalization)
  Sender: FDA-Public Use
  Company Number: GB-BAUSCH-2007BL004560

PATIENT
  Age: 67 Year
  Sex: Female

DRUGS (4)
  1. DEXAMETHASONE SODIUM PHOSPHATE [Suspect]
     Indication: DRUG USE FOR UNKNOWN INDICATION
     Route: 048
  2. CAELYX /SWE/ [Suspect]
     Indication: OVARIAN CANCER
     Route: 042
     Dates: start: 20061102, end: 20061201
  3. DOMPERIDONE [Concomitant]
     Indication: PREMEDICATION
     Route: 048
  4. DEXAMETHASONE TAB [Concomitant]
     Indication: PREMEDICATION
     Route: 048

REACTIONS (3)
  - BRONCHITIS [None]
  - DYSPNOEA [None]
  - SKIN REACTION [None]
